FAERS Safety Report 9438606 (Version 1)
Quarter: 2013Q3

REPORT INFORMATION
  Report Type: Spontaneous
  Country: DK (occurrence: DK)
  Receive Date: 20130802
  Receipt Date: 20130802
  Transmission Date: 20140515
  Serious: Yes (Other)
  Sender: FDA-Public Use
  Company Number: DK-WATSON-2013-13503

PATIENT
  Age: 76 Year
  Sex: Female

DRUGS (3)
  1. SIMVASTATIN (UNKNOWN) [Suspect]
     Indication: HYPERLIPIDAEMIA
     Dosage: UNK
     Route: 048
     Dates: start: 2005, end: 2007
  2. SIMVASTATIN (UNKNOWN) [Suspect]
     Dosage: UNK
  3. ZARATOR /01326101/ [Suspect]
     Indication: HYPERLIPIDAEMIA
     Dosage: UNK
     Route: 048
     Dates: start: 2007, end: 20080923

REACTIONS (9)
  - Polymyositis [Recovering/Resolving]
  - Musculoskeletal stiffness [Recovering/Resolving]
  - Nerve injury [Recovering/Resolving]
  - Eczema [Recovering/Resolving]
  - Joint stiffness [Recovering/Resolving]
  - Pain [Recovering/Resolving]
  - Muscular weakness [Recovering/Resolving]
  - Skin discolouration [Recovering/Resolving]
  - Autoimmune disorder [Recovering/Resolving]
